FAERS Safety Report 15097284 (Version 6)
Quarter: 2019Q4

REPORT INFORMATION
  Report Type: Report from Study
  Country: None (occurrence: GR)
  Receive Date: 20180702
  Receipt Date: 20191119
  Transmission Date: 20200122
  Serious: Yes (Hospitalization, Other)
  Sender: FDA-Public Use
  Company Number: GR-ABBVIE-18K-066-2405344-00

PATIENT
  Sex: Male
  Weight: 69 kg

DRUGS (8)
  1. DUODOPA [Suspect]
     Active Substance: CARBIDOPA\LEVODOPA
     Dosage: CR:7.4ML/H (09:00-00:00), CR:5.6ML/H (00:01-08:59); ED:3.9ML
     Route: 050
  2. DUODOPA [Suspect]
     Active Substance: CARBIDOPA\LEVODOPA
     Dosage: CR:6.2ML/H (FROM10:00 TO 24:00); CR:5.2ML/H (FROM 24:00 TO10:00); EXTRA DOSE:3.7ML
     Route: 050
  3. DUODOPA [Suspect]
     Active Substance: CARBIDOPA\LEVODOPA
     Dosage: CD: 7.7 ML/H (09:00-00:00); CONTINUOUS RATE:5.6ML/H (0:01-08:59); ED: 3ML
     Route: 050
  4. MADOPAR [Concomitant]
     Active Substance: BENSERAZIDE HYDROCHLORIDE\LEVODOPA
     Indication: PARKINSON^S DISEASE
     Route: 048
  5. DUODOPA [Suspect]
     Active Substance: CARBIDOPA\LEVODOPA
     Indication: PARKINSON^S DISEASE
     Dosage: CR:5.0ML/H(FROM 24:00 TO 05:00);CR:5.5ML/H (FROM 09:00 TO 24:00); EXTRA DOSE:3.5ML
     Route: 050
     Dates: start: 20150125
  6. DUODOPA [Suspect]
     Active Substance: CARBIDOPA\LEVODOPA
     Dosage: CR:6.5ML/H (FROM 09:00 TO 24:00); CR:5.5ML/H (FROM 00:01 TO 08:59); ED:4.0ML
     Route: 050
  7. DUODOPA [Suspect]
     Active Substance: CARBIDOPA\LEVODOPA
     Dosage: CR: 7.4 ML/H (09:00-00:00); CR: 5.6ML/H (00:01-08:59); ED: 3.9ML (24H USE OF THE PUMP)
     Route: 050
  8. CLONOTRIL [Concomitant]
     Active Substance: CLONAZEPAM
     Indication: INSOMNIA
     Route: 048

REACTIONS (4)
  - Colorectal cancer [Recovering/Resolving]
  - Device physical property issue [Unknown]
  - Metastases to liver [Not Recovered/Not Resolved]
  - Large intestinal obstruction [Recovered/Resolved]

NARRATIVE: CASE EVENT DATE: 2017
